FAERS Safety Report 20492943 (Version 1)
Quarter: 2022Q1

REPORT INFORMATION
  Report Type: Other
  Country: US (occurrence: None)
  Receive Date: 20220219
  Receipt Date: 20220219
  Transmission Date: 20220424
  Serious: No
  Sender: FDA-Public Use
  Company Number: US-ROCHE-3024098

PATIENT
  Age: 45 Year
  Sex: Female

DRUGS (4)
  1. OCREVUS [Suspect]
     Active Substance: OCRELIZUMAB
     Indication: Relapsing multiple sclerosis
     Route: 065
  2. AUBAGIO [Concomitant]
     Active Substance: TERIFLUNOMIDE
  3. PROVIGIL [Concomitant]
     Active Substance: MODAFINIL
  4. ASPIRIN [Concomitant]
     Active Substance: ASPIRIN

REACTIONS (1)
  - COVID-19 [Unknown]

NARRATIVE: CASE EVENT DATE: 20220101
